FAERS Safety Report 10110189 (Version 1)
Quarter: 2014Q2

REPORT INFORMATION
  Report Type: Report from Study
  Country: US (occurrence: None)
  Receive Date: 20140423
  Receipt Date: 20140423
  Transmission Date: 20141212
  Serious: Yes (Hospitalization)
  Sender: FDA-Public Use
  Company Number: 2014UCU075000141

PATIENT
  Age: 57 Year
  Sex: Female

DRUGS (13)
  1. CIMZIA [Suspect]
     Indication: CROHN^S DISEASE
     Route: 058
     Dates: start: 20091109
  2. 6-MP [Suspect]
     Indication: CROHN^S DISEASE
     Dates: start: 20090311, end: 20130610
  3. ROWASA [Concomitant]
  4. COLAZAL [Concomitant]
  5. BALSALAZIDE [Concomitant]
  6. CIPROFLOXACIN [Concomitant]
  7. AMOXICILLIN W/CLAVULANATE POTASSIOIUM [Concomitant]
  8. AUGMENTIN [Concomitant]
  9. LEVAQUIN [Concomitant]
  10. INFLIXIMAB [Concomitant]
  11. ADALIMUMAB [Concomitant]
  12. IBUPROFEN [Concomitant]
  13. TUMS [Concomitant]

REACTIONS (3)
  - Drug-induced liver injury [None]
  - International normalised ratio increased [None]
  - Protein total decreased [None]
